FAERS Safety Report 5835909-5 (Version None)
Quarter: 2008Q3

REPORT INFORMATION
  Report Type: 
  Country: None (occurrence: None)
  Receive Date: 20080806
  Receipt Date: 20080730
  Transmission Date: 20090109
  Serious: Yes (Life-Threatening, Hospitalization, Other)
  Sender: FDA-Public Use
  Company Number: GB-PFIZER INC-2008064437

PATIENT
  Age: 25 Year
  Sex: Female
  Weight: 60 kg

DRUGS (2)
  1. SULFASALAZINE [Suspect]
     Indication: ARTHRITIS REACTIVE
  2. ARCOXIA [Concomitant]

REACTIONS (5)
  - MALAISE [None]
  - NEUTROPENIA [None]
  - NEUTROPENIC SEPSIS [None]
  - OROPHARYNGEAL PAIN [None]
  - PYREXIA [None]
